FAERS Safety Report 6308551-X (Version None)
Quarter: 2009Q3

REPORT INFORMATION
  Report Type: 
  Country: None (occurrence: None)
  Receive Date: 20090813
  Receipt Date: 20090730
  Transmission Date: 20100115
  Serious: Yes (Hospitalization)
  Sender: FDA-Public Use
  Company Number: ES-MYLANLABS-2009S1013761

PATIENT
  Age: 62 Year
  Sex: Male

DRUGS (5)
  1. OXALIPLATIN [Suspect]
     Indication: COLON CANCER METASTATIC
     Route: 042
     Dates: start: 20090707, end: 20090707
  2. FLUOROURACIL [Suspect]
     Indication: COLON CANCER METASTATIC
     Route: 042
     Dates: start: 20090707, end: 20090708
  3. FOLIDAN [Suspect]
     Indication: COLON CANCER METASTATIC
     Route: 042
     Dates: start: 20090707, end: 20090707
  4. ONDASETRON /00955301/ [Suspect]
     Indication: VOMITING
     Route: 042
     Dates: start: 20090707, end: 20090707
  5. FORTECORTIN [Suspect]
     Indication: VOMITING
     Route: 048
     Dates: start: 20090707, end: 20090708

REACTIONS (1)
  - DEEP VEIN THROMBOSIS [None]
